FAERS Safety Report 10763014 (Version 1)
Quarter: 2015Q1

REPORT INFORMATION
  Report Type: Spontaneous
  Country: US (occurrence: None)
  Receive Date: 20150128
  Receipt Date: 20150128
  Transmission Date: 20150721
  Serious: Yes (Hospitalization)
  Sender: FDA-Public Use
  Company Number: 1348954

PATIENT
  Age: 83 Year
  Sex: Female

DRUGS (1)
  1. RITUXAN [Suspect]
     Active Substance: RITUXIMAB
     Indication: RHEUMATOID ARTHRITIS
     Dosage: STANDARD DOSE FOR RITUXAN RA (1000 MG, 2 IN 6 M)

REACTIONS (3)
  - Pneumonia [None]
  - Anaemia [None]
  - Hypogammaglobulinaemia [None]
